FAERS Safety Report 5722645-9 (Version None)
Quarter: 2008Q2

REPORT INFORMATION
  Report Type: 
  Country: None (occurrence: None)
  Receive Date: 20080429
  Receipt Date: 20071221
  Transmission Date: 20081010
  Serious: No
  Sender: FDA-Public Use
  Company Number: US-ASTRAZENECA-2007UW28263

PATIENT
  Age: 929 Month
  Sex: Female
  Weight: 61.7 kg

DRUGS (5)
  1. NEXIUM [Suspect]
     Indication: GASTRIC ULCER HAEMORRHAGE
     Route: 048
     Dates: start: 20071028, end: 20071201
  2. SYNTHROID [Concomitant]
  3. VALIUM [Concomitant]
  4. TYLENOL [Concomitant]
     Indication: PAIN
     Route: 054
  5. TIMOPTIC [Concomitant]
     Indication: EYE DISORDER
     Route: 047

REACTIONS (5)
  - GASTROOESOPHAGEAL REFLUX DISEASE [None]
  - MALAISE [None]
  - MOUTH ULCERATION [None]
  - SPEECH DISORDER [None]
  - THYROID FUNCTION TEST ABNORMAL [None]
